FAERS Safety Report 7464547-6 (Version None)
Quarter: 2011Q2

REPORT INFORMATION
  Report Type: 
  Country: None (occurrence: None)
  Receive Date: 20110509
  Receipt Date: 20110503
  Transmission Date: 20111010
  Serious: No
  Sender: FDA-Public Use
  Company Number: US-PFIZER INC-2011096420

PATIENT
  Sex: Female
  Weight: 76 kg

DRUGS (4)
  1. SINGULAIR [Concomitant]
     Indication: HYPERSENSITIVITY
     Dosage: 10MG DAILY
  2. IBUPROFEN [Suspect]
     Indication: MUSCULOSKELETAL PAIN
     Dosage: 200 MG, 2X/DAY
     Route: 048
     Dates: start: 20110401
  3. PRISTIQ [Suspect]
     Indication: DEPRESSION
     Dosage: 50MG DAILY
     Route: 048
     Dates: start: 20110101
  4. SYNTHROID [Concomitant]
     Indication: THYROID DISORDER
     Dosage: 1MG DAILY
     Route: 048

REACTIONS (4)
  - AGGRESSION [None]
  - INCREASED TENDENCY TO BRUISE [None]
  - MUSCULOSKELETAL PAIN [None]
  - HAEMORRHAGIC DIATHESIS [None]
